FAERS Safety Report 16119890 (Version 1)
Quarter: 2019Q1

REPORT INFORMATION
  Report Type: Spontaneous
  Country: IT (occurrence: IT)
  Receive Date: 20190326
  Receipt Date: 20190326
  Transmission Date: 20190418
  Serious: Yes (Hospitalization, Other)
  Sender: FDA-Public Use
  Company Number: IT-UCBSA-2019011409

PATIENT
  Age: 17 Year
  Sex: Male

DRUGS (1)
  1. KEPPRA [Suspect]
     Active Substance: LEVETIRACETAM
     Indication: EPILEPSY
     Dosage: 2 DF DAILY (1000 MG)
     Route: 048

REACTIONS (2)
  - Therapy non-responder [Unknown]
  - Epilepsy [Unknown]

NARRATIVE: CASE EVENT DATE: 20190214
